FAERS Safety Report 9655558 (Version 3)
Quarter: 2013Q4

REPORT INFORMATION
  Report Type: Report from Study
  Country: TH (occurrence: TH)
  Receive Date: 20131029
  Receipt Date: 20131120
  Transmission Date: 20140711
  Serious: Yes (Other)
  Sender: FDA-Public Use
  Company Number: TH-ROCHE-1296354

PATIENT
  Age: 42 Year
  Sex: Male

DRUGS (3)
  1. ALTEPLASE [Suspect]
     Indication: PERIPHERAL ISCHAEMIA
     Dosage: OVER 58 HOURS
     Route: 041
  2. ALTEPLASE [Suspect]
     Indication: EMBOLISM ARTERIAL
  3. HEPARIN [Suspect]
     Indication: THROMBOSIS PROPHYLAXIS
     Dosage: 500 UNIT/HR.
     Route: 065

REACTIONS (1)
  - Extravasation blood [Recovered/Resolved]
